FAERS Safety Report 19490454 (Version 1)
Quarter: 2021Q3

REPORT INFORMATION
  Report Type: Spontaneous
  Country: CA (occurrence: CA)
  Receive Date: 20210705
  Receipt Date: 20210705
  Transmission Date: 20211014
  Serious: Yes (Hospitalization, Other)
  Sender: FDA-Public Use
  Company Number: CA-SA-2021SA210386

PATIENT
  Age: 42 Year
  Sex: Female

DRUGS (18)
  1. AMLODIPINE [Concomitant]
     Active Substance: AMLODIPINE BESYLATE
  2. ASPIRIN [ACETYLSALICYLIC ACID] [Concomitant]
     Active Substance: ASPIRIN
  3. GLICLAZIDE [Concomitant]
     Active Substance: GLICLAZIDE
  4. BISOPROLOL [Concomitant]
     Active Substance: BISOPROLOL
  5. LANTUS [Concomitant]
     Active Substance: INSULIN GLARGINE
     Route: 058
  6. METFORMIN [Concomitant]
     Active Substance: METFORMIN HYDROCHLORIDE
  7. POTASSIUM [Concomitant]
     Active Substance: POTASSIUM
  8. HYDRALAZINE [Concomitant]
     Active Substance: HYDRALAZINE HYDROCHLORIDE
  9. LYRICA [Concomitant]
     Active Substance: PREGABALIN
  10. MAGNESIUM OXIDE. [Concomitant]
     Active Substance: MAGNESIUM OXIDE
  11. LOVENOX [Suspect]
     Active Substance: ENOXAPARIN SODIUM
     Route: 042
  12. ARIPIPRAZOLE. [Concomitant]
     Active Substance: ARIPIPRAZOLE
  13. RAMIPRIL. [Concomitant]
     Active Substance: RAMIPRIL
  14. LAMOTRIGINE. [Concomitant]
     Active Substance: LAMOTRIGINE
  15. NOVORAPID [Concomitant]
     Active Substance: INSULIN ASPART
     Route: 058
  16. PROBIOTICS NOS [Concomitant]
     Active Substance: PROBIOTICS NOS
  17. FUROSEMIDE. [Concomitant]
     Active Substance: FUROSEMIDE
  18. OZEMPIC [Concomitant]
     Active Substance: SEMAGLUTIDE
     Route: 058

REACTIONS (5)
  - Transfusion [Unknown]
  - Dependence on respirator [Unknown]
  - Epistaxis [Unknown]
  - Nasal cavity packing [Unknown]
  - Endotracheal intubation [Unknown]
